FAERS Safety Report 11419673 (Version 1)
Quarter: 2015Q3

REPORT INFORMATION
  Report Type: Report from Study
  Country: US (occurrence: US)
  Receive Date: 20150826
  Receipt Date: 20150826
  Transmission Date: 20151125
  Serious: Yes (Other)
  Sender: FDA-Public Use
  Company Number: US-ABBVIE-15K-163-1450548-00

PATIENT
  Sex: Male
  Weight: 85.35 kg

DRUGS (6)
  1. HUMIRA [Suspect]
     Active Substance: ADALIMUMAB
     Indication: PSORIASIS
     Route: 058
     Dates: start: 2014, end: 20150818
  2. PREDNISONE. [Suspect]
     Active Substance: PREDNISONE
     Indication: PRODUCT USED FOR UNKNOWN INDICATION
     Route: 065
     Dates: start: 201410
  3. METHOTREXATE [Concomitant]
     Active Substance: METHOTREXATE
     Indication: PSORIASIS
     Dates: start: 201412
  4. FOLIC ACID. [Concomitant]
     Active Substance: FOLIC ACID
     Indication: PRODUCT USED FOR UNKNOWN INDICATION
     Dates: start: 201412
  5. STELARA [Concomitant]
     Active Substance: USTEKINUMAB
     Indication: PSORIASIS
  6. RASUVO [Concomitant]
     Active Substance: METHOTREXATE SODIUM
     Indication: PSORIASIS

REACTIONS (7)
  - Drug ineffective [Not Recovered/Not Resolved]
  - Nerve compression [Not Recovered/Not Resolved]
  - Fall [Recovered/Resolved]
  - Alopecia [Recovering/Resolving]
  - Psoriasis [Recovering/Resolving]
  - Back pain [Not Recovered/Not Resolved]
  - Hidradenitis [Not Recovered/Not Resolved]

NARRATIVE: CASE EVENT DATE: 2014
